FAERS Safety Report 9543877 (Version 2)
Quarter: 2013Q3

REPORT INFORMATION
  Report Type: Spontaneous
  Country: JP (occurrence: JP)
  Receive Date: 20130923
  Receipt Date: 20130925
  Transmission Date: 20140515
  Serious: Yes (Hospitalization)
  Sender: FDA-Public Use
  Company Number: JP-VIIV HEALTHCARE LIMITED-B0924227A

PATIENT
  Age: 4 Decade
  Sex: Male

DRUGS (5)
  1. RETROVIR [Suspect]
     Indication: PRODUCT USED FOR UNKNOWN INDICATION
     Route: 048
  2. EPIVIR [Concomitant]
     Route: 048
  3. VIRACEPT [Concomitant]
     Route: 048
  4. VIDEX [Concomitant]
     Route: 048
  5. KALETRA [Concomitant]
     Route: 048

REACTIONS (2)
  - Vitamin D decreased [Unknown]
  - Muscular weakness [Unknown]
